FAERS Safety Report 5867830-0 (Version None)
Quarter: 2008Q3

REPORT INFORMATION
  Report Type: 
  Country: None (occurrence: None)
  Receive Date: 20080902
  Receipt Date: 20080603
  Transmission Date: 20090109
  Serious: No
  Sender: FDA-Public Use
  Company Number: US-ABBOTT-08P-163-0456489-00

PATIENT
  Sex: Male
  Weight: 79.45 kg

DRUGS (2)
  1. DEPAKOTE ER [Suspect]
     Indication: BIPOLAR DISORDER
     Dates: start: 19990101
  2. DEPAKENE [Suspect]
     Indication: BIPOLAR DISORDER
     Dates: start: 19990101

REACTIONS (3)
  - GASTROINTESTINAL DISORDER [None]
  - OSTEOARTHRITIS [None]
  - VITAMIN D DECREASED [None]
